FAERS Safety Report 4943479-9 (Version None)
Quarter: 2006Q1

REPORT INFORMATION
  Report Type: 
  Country: None (occurrence: None)
  Receive Date: 20060309
  Receipt Date: 20060228
  Transmission Date: 20060701
  Serious: Yes (Other)
  Sender: FDA-Public Use
  Company Number: 2006029282

PATIENT
  Sex: Female
  Weight: 69.4003 kg

DRUGS (2)
  1. NEURONTIN [Suspect]
     Indication: POST HERPETIC NEURALGIA
     Dosage: 300 MG (300 MG, 1 IN 1D), ORAL
     Route: 048
     Dates: start: 20021101
  2. HERBAL PREPARATION (HERBAL PREPARATION) [Concomitant]

REACTIONS (3)
  - DRUG DEPENDENCE [None]
  - DRUG INEFFECTIVE [None]
  - MEMORY IMPAIRMENT [None]
